FAERS Safety Report 12426612 (Version 2)
Quarter: 2016Q3

REPORT INFORMATION
  Report Type: Spontaneous
  Country: US (occurrence: US)
  Receive Date: 20160601
  Receipt Date: 20160707
  Transmission Date: 20161109
  Serious: Yes (Other)
  Sender: FDA-Public Use
  Company Number: US-BAYER-2016-064851

PATIENT
  Age: 40 Year
  Sex: Female
  Weight: 81.63 kg

DRUGS (2)
  1. METHOTREXATE [METHOTREXATE] [Concomitant]
     Active Substance: METHOTREXATE
     Indication: RHEUMATOID ARTHRITIS
  2. MIRENA [Suspect]
     Active Substance: LEVONORGESTREL
     Route: 015

REACTIONS (9)
  - Medical device monitoring error [Unknown]
  - Complication of device removal [Unknown]
  - Fallopian tube disorder [Unknown]
  - Amenorrhoea [Unknown]
  - Uterine perforation [Recovering/Resolving]
  - Device breakage [Unknown]
  - Device dislocation [Unknown]
  - Complication of device insertion [Unknown]
  - Device difficult to use [Unknown]

NARRATIVE: CASE EVENT DATE: 20151222
